FAERS Safety Report 10108901 (Version 1)
Quarter: 2014Q2

REPORT INFORMATION
  Report Type: Report from Study
  Country: US (occurrence: US)
  Receive Date: 20140425
  Receipt Date: 20140425
  Transmission Date: 20141212
  Serious: Yes (Other)
  Sender: FDA-Public Use
  Company Number: US-ROCHE-1385380

PATIENT
  Sex: Female
  Weight: 40.4 kg

DRUGS (2)
  1. NUTROPIN AQ [Suspect]
     Indication: BODY HEIGHT BELOW NORMAL
     Route: 058
  2. CELEXA (UNITED STATES) [Concomitant]
     Route: 065

REACTIONS (4)
  - Fatigue [Unknown]
  - Asthenia [Unknown]
  - Overdose [Unknown]
  - Insomnia [Unknown]
